FAERS Safety Report 5365474-0 (Version None)
Quarter: 2007Q2

REPORT INFORMATION
  Report Type: 
  Country: None (occurrence: None)
  Receive Date: 20070530
  Receipt Date: 20070115
  Transmission Date: 20071010
  Serious: No
  Sender: FDA-Public Use
  Company Number: 2007PV028460

PATIENT
  Age: 62 Year
  Sex: Male
  Weight: 122.4712 kg

DRUGS (4)
  1. BYETTA [Suspect]
     Indication: GLUCOSE TOLERANCE IMPAIRED
     Dosage: 5 MCG;BID;SC 10 MCG; SC
     Route: 058
     Dates: start: 20070101, end: 20070113
  2. BYETTA [Suspect]
     Indication: GLUCOSE TOLERANCE IMPAIRED
     Dosage: 5 MCG;BID;SC 10 MCG; SC
     Route: 058
     Dates: start: 20070101
  3. METFORMIN HCL [Concomitant]
  4. ACTOS [Concomitant]

REACTIONS (3)
  - BLOOD GLUCOSE INCREASED [None]
  - DRUG EFFECT DECREASED [None]
  - NAUSEA [None]
